FAERS Safety Report 8096451-7 (Version None)
Quarter: 2012Q1

REPORT INFORMATION
  Report Type: 
  Country: None (occurrence: None)
  Receive Date: 20120129
  Receipt Date: 20111221
  Transmission Date: 20120608
  Serious: No
  Sender: FDA-Public Use
  Company Number: US-ABBOTT-11P-163-0885419-00

PATIENT
  Sex: Male
  Weight: 90.8 kg

DRUGS (5)
  1. HUMIRA [Suspect]
     Indication: CROHN'S DISEASE
     Dates: start: 20111123, end: 20111123
  2. HUMIRA [Suspect]
     Dates: start: 20111221
  3. AZATHIOPRINE [Concomitant]
     Indication: CROHN'S DISEASE
  4. PREDNISONE TAB [Concomitant]
     Indication: CROHN'S DISEASE
  5. HUMIRA [Suspect]
     Dates: start: 20111207, end: 20111207

REACTIONS (3)
  - INJECTION SITE HAEMORRHAGE [None]
  - INCORRECT DOSE ADMINISTERED [None]
  - DEVICE MALFUNCTION [None]
